FAERS Safety Report 23482630 (Version 1)
Quarter: 2024Q1

REPORT INFORMATION
  Report Type: Spontaneous
  Country: US (occurrence: None)
  Receive Date: 20240204
  Receipt Date: 20240204
  Transmission Date: 20240410
  Serious: Yes (Disabling)
  Sender: FDA-Public Use
  Company Number: None

PATIENT
  Age: 87 Year
  Sex: Male
  Weight: 103.5 kg

DRUGS (1)
  1. DUPIXENT [Suspect]
     Active Substance: DUPILUMAB
     Indication: Fungal skin infection
     Dosage: OTHER FREQUENCY : INJ EVERY 2 WEEKS;?
     Route: 058

REACTIONS (7)
  - Foreign body sensation in eyes [None]
  - Therapy cessation [None]
  - Lacrimation increased [None]
  - Epistaxis [None]
  - Nasal polyps [None]
  - Mucosal disorder [None]
  - Pain [None]

NARRATIVE: CASE EVENT DATE: 20231214
